FAERS Safety Report 12472097 (Version 1)
Quarter: 2016Q2

REPORT INFORMATION
  Report Type: Spontaneous
  Country: US (occurrence: None)
  Receive Date: 20160615
  Receipt Date: 20160615
  Transmission Date: 20160815
  Serious: Yes (Hospitalization)
  Sender: FDA-Public Use
  Company Number: None

PATIENT
  Age: 55 Year
  Sex: Female
  Weight: 102.5 kg

DRUGS (11)
  1. BACLOFEN. [Concomitant]
     Active Substance: BACLOFEN
  2. TEGRETOL [Concomitant]
     Active Substance: CARBAMAZEPINE
  3. GABAPENTIN 800MG PO QPM [Suspect]
     Active Substance: GABAPENTIN
  4. FLOVENT [Concomitant]
     Active Substance: FLUTICASONE PROPIONATE
  5. MS CONTIN [Suspect]
     Active Substance: MORPHINE SULFATE
     Indication: PAIN
     Route: 048
  6. KLONOPIN [Suspect]
     Active Substance: CLONAZEPAM
     Indication: PAIN
     Route: 048
  7. ALBUTEROL. [Concomitant]
     Active Substance: ALBUTEROL
  8. PREMARIN [Concomitant]
     Active Substance: ESTROGENS, CONJUGATED
  9. LASIX [Concomitant]
     Active Substance: FUROSEMIDE
  10. NEURONTIN [Concomitant]
     Active Substance: GABAPENTIN
  11. TESSALON [Concomitant]
     Active Substance: BENZONATATE

REACTIONS (2)
  - Pneumonia [None]
  - Somnolence [None]

NARRATIVE: CASE EVENT DATE: 20151231
